FAERS Safety Report 24464187 (Version 1)
Quarter: 2024Q4

REPORT INFORMATION
  Report Type: Report from Study
  Country: US (occurrence: US)
  Receive Date: 20241018
  Receipt Date: 20241018
  Transmission Date: 20250115
  Serious: No
  Sender: ROCHE
  Company Number: US-ROCHE-3345026

PATIENT
  Age: 68 Year
  Sex: Female

DRUGS (11)
  1. XOLAIR [Suspect]
     Active Substance: OMALIZUMAB
     Indication: Urticaria
     Dosage: DATE OF TREATMENT- 08/FEB/2023, 29/MAR/2023, 16/OCT/2023, 07/FEB/2024, 20/MAR/2024
     Route: 058
     Dates: start: 20201014
  2. XOLAIR [Suspect]
     Active Substance: OMALIZUMAB
     Dosage: DATE OF TREATMENT-  29/MAR/2023, 16/OCT/2023, 07/FEB/2024, 20/MAR/2024
     Route: 058
     Dates: start: 20230208
  3. ZOLPIDEM [Concomitant]
     Active Substance: ZOLPIDEM TARTRATE
  4. SINGULARIS SUPERIOR ASHWAGANDHA FORTE [Concomitant]
  5. ALLEGRA [Concomitant]
     Active Substance: FEXOFENADINE HYDROCHLORIDE
  6. FAMOTIDINE [Concomitant]
     Active Substance: FAMOTIDINE
  7. EPINEPHRINE [Concomitant]
     Active Substance: EPINEPHRINE
  8. TOPAMAX [Concomitant]
     Active Substance: TOPIRAMATE
  9. LOSARTAN [Concomitant]
     Active Substance: LOSARTAN
  10. LIPITOR [Concomitant]
     Active Substance: ATORVASTATIN CALCIUM
  11. METFORMIN [Concomitant]
     Active Substance: METFORMIN HYDROCHLORIDE

REACTIONS (2)
  - Off label use [Unknown]
  - No adverse event [Unknown]
